FAERS Safety Report 6922105-3 (Version None)
Quarter: 2010Q3

REPORT INFORMATION
  Report Type: 
  Country: None (occurrence: None)
  Receive Date: 20100812
  Receipt Date: 20100707
  Transmission Date: 20110219
  Serious: Yes (Hospitalization, Other)
  Sender: FDA-Public Use
  Company Number: PHHY2009JP45885

PATIENT
  Sex: Male

DRUGS (8)
  1. DIOVAN [Suspect]
     Dosage: 160 MG, QD
     Route: 048
     Dates: start: 20071025
  2. ASPIRIN [Suspect]
     Dosage: 100 MG, UNK
     Route: 048
     Dates: start: 20060524, end: 20080513
  3. BLOPRESS [Concomitant]
     Indication: HYPERTENSION
     Dosage: 8 MG, UNK
     Route: 048
     Dates: start: 20030627, end: 20071024
  4. BASEN [Concomitant]
     Dosage: 0.9 MG, UNK
     Route: 048
     Dates: start: 20020522
  5. AMARYL [Concomitant]
     Dosage: 1.5 MG, UNK
     Route: 048
     Dates: start: 20020605
  6. AMARYL [Concomitant]
     Dosage: 3 MG, UNK
     Route: 048
  7. GLYCORAN [Concomitant]
     Dosage: 500 MG, UNK
     Route: 048
     Dates: start: 20040813
  8. DORNER [Concomitant]
     Dosage: 120 UG, UNK
     Dates: start: 20080514

REACTIONS (3)
  - BLOOD GLUCOSE INCREASED [None]
  - BLOOD PRESSURE DIASTOLIC DECREASED [None]
  - GASTRIC ULCER [None]
